FAERS Safety Report 5289459-8 (Version None)
Quarter: 2007Q2

REPORT INFORMATION
  Report Type: 
  Country: None (occurrence: None)
  Receive Date: 20070402
  Receipt Date: 20070323
  Transmission Date: 20071010
  Serious: Yes (Hospitalization)
  Sender: FDA-Public Use
  Company Number: 163-21880-07031346

PATIENT
  Age: 81 Year
  Sex: Female

DRUGS (2)
  1. REVLIMID [Suspect]
     Indication: MULTIPLE MYELOMA
     Dosage: 10 - 25MG, DAILY, ORAL
     Route: 048
     Dates: start: 20060901, end: 20070116
  2. REVLIMID [Suspect]
     Indication: MULTIPLE MYELOMA
     Dosage: 10 - 25MG, DAILY, ORAL
     Route: 048
     Dates: start: 20070205

REACTIONS (1)
  - DRUG TOXICITY [None]
